FAERS Safety Report 23066563 (Version 1)
Quarter: 2023Q4

REPORT INFORMATION
  Report Type: Report from Study
  Country: DE (occurrence: DE)
  Receive Date: 20231015
  Receipt Date: 20231015
  Transmission Date: 20240110
  Serious: Yes (Other)
  Sender: FDA-Public Use
  Company Number: DE-UCBSA-2023048645

PATIENT
  Age: 59 Year
  Sex: Female

DRUGS (1)
  1. RINVOQ [Suspect]
     Active Substance: UPADACITINIB
     Indication: Product used for unknown indication
     Dosage: 15 MILLIGRAM
     Route: 048
     Dates: start: 202203

REACTIONS (3)
  - Basal cell carcinoma [Not Recovered/Not Resolved]
  - Dyspepsia [Unknown]
  - Dizziness [Unknown]

NARRATIVE: CASE EVENT DATE: 20230208
